FAERS Safety Report 20231719 (Version 1)
Quarter: 2021Q4

REPORT INFORMATION
  Report Type: Spontaneous
  Country: US (occurrence: US)
  Receive Date: 20211227
  Receipt Date: 20211227
  Transmission Date: 20220303
  Serious: No
  Sender: FDA-Public Use
  Company Number: US-AVEO ONCOLOGY-2021-AVEO-US003639

PATIENT

DRUGS (11)
  1. FOTIVDA [Suspect]
     Active Substance: TIVOZANIB HYDROCHLORIDE
     Indication: Renal cell carcinoma
     Dosage: 1.34 MG, DAILY FOR 21 DAYS, AND 7 DAYS OFF
     Route: 048
     Dates: start: 20210926
  2. FINASTERIDE [Concomitant]
     Active Substance: FINASTERIDE
  3. I-VITE [Concomitant]
  4. SODIUM CHLORIDE [Concomitant]
     Active Substance: SODIUM CHLORIDE
  5. SIMVASTATIN [Concomitant]
     Active Substance: SIMVASTATIN
  6. TAMSULOSIN [Concomitant]
     Active Substance: TAMSULOSIN
  7. VANICREAM [Concomitant]
     Active Substance: TITANIUM DIOXIDE\ZINC OXIDE
  8. VITAMINS [Concomitant]
     Active Substance: VITAMINS
  9. PREDNISONE [Concomitant]
     Active Substance: PREDNISONE
  10. TRIAMCINOLONE ACETONIDE [Concomitant]
     Active Substance: TRIAMCINOLONE ACETONIDE
  11. SODIUM BICARBONATE [Concomitant]
     Active Substance: SODIUM BICARBONATE

REACTIONS (3)
  - Muscle spasms [Unknown]
  - Discontinued product administered [Unknown]
  - Epistaxis [Unknown]
